FAERS Safety Report 15164159 (Version 2)
Quarter: 2018Q3

REPORT INFORMATION
  Report Type: Spontaneous
  Country: CN (occurrence: CN)
  Receive Date: 20180719
  Receipt Date: 20180903
  Transmission Date: 20181010
  Serious: Yes (Death)
  Sender: FDA-Public Use
  Company Number: CN-B.I. PHARMACEUTICALS,INC./RIDGEFIELD-2018-BI-034764

PATIENT
  Age: 72 Year
  Sex: Male
  Weight: 48 kg

DRUGS (1)
  1. OFEV [Suspect]
     Active Substance: NINTEDANIB
     Indication: IDIOPATHIC PULMONARY FIBROSIS
     Route: 048
     Dates: start: 20180517, end: 20180518

REACTIONS (3)
  - Abdominal pain upper [Recovering/Resolving]
  - Idiopathic pulmonary fibrosis [Fatal]
  - Product quality issue [Unknown]

NARRATIVE: CASE EVENT DATE: 20180517
